FAERS Safety Report 8333351-9 (Version None)
Quarter: 2012Q1

REPORT INFORMATION
  Report Type: 
  Country: None (occurrence: None)
  Receive Date: 20120327
  Receipt Date: 20110208
  Transmission Date: 20120608
  Serious: Yes (Other)
  Sender: FDA-Public Use
  Company Number: PHHY2011US30268

PATIENT
  Age: 66 Year
  Sex: Male
  Weight: 96.8 kg

DRUGS (10)
  1. NEXIUM [Concomitant]
  2. BUSPAR [Concomitant]
  3. GLEEVEC [Suspect]
     Indication: GASTROINTESTINAL STROMAL TUMOUR
     Dosage: 400 MG DAILY, ORAL
     Route: 048
  4. VERAPAMIL [Concomitant]
  5. NORVASC [Concomitant]
  6. CARDURA [Concomitant]
  7. IRON (IRON) [Concomitant]
  8. LIPITOR [Concomitant]
  9. ALPRAZOLAM [Concomitant]
  10. ZOLOFT [Concomitant]

REACTIONS (2)
  - NEOPLASM MALIGNANT [None]
  - GASTROINTESTINAL STROMAL TUMOUR [None]
